FAERS Safety Report 23646223 (Version 1)
Quarter: 2024Q1

REPORT INFORMATION
  Report Type: Spontaneous
  Country: JP (occurrence: JP)
  Receive Date: 20240319
  Receipt Date: 20240319
  Transmission Date: 20240410
  Serious: Yes (Other)
  Sender: FDA-Public Use
  Company Number: JP-002147023-NVSJ2024JP003345

PATIENT
  Age: 48 Year
  Sex: Male

DRUGS (1)
  1. GLIVEC [Suspect]
     Active Substance: IMATINIB MESYLATE
     Indication: Gastric neuroendocrine carcinoma
     Dosage: UNK
     Route: 048

REACTIONS (2)
  - Gastric neuroendocrine carcinoma [Unknown]
  - Malignant neoplasm progression [Unknown]
